FAERS Safety Report 17229310 (Version 2)
Quarter: 2020Q1

REPORT INFORMATION
  Report Type: Report from Study
  Country: US (occurrence: US)
  Receive Date: 20200103
  Receipt Date: 20200106
  Transmission Date: 20200409
  Serious: Yes (Other)
  Sender: FDA-Public Use
  Company Number: US-PFIZER INC-2019560547

PATIENT
  Age: 52 Year
  Sex: Female

DRUGS (5)
  1. CARBOPLATIN. [Suspect]
     Active Substance: CARBOPLATIN
     Dosage: UNK (150 MG OF DRUG AS A WHITE LYOPHILIZED POWDER WITH 150 MG OF MANNITOL; WHEN RECONSTITUTED WITH )
  2. DEXTROSE. [Concomitant]
     Active Substance: DEXTROSE
     Indication: SOFT TISSUE SARCOMA
     Dosage: UNK (THE PRESCRIBED DOSE WAS FURTHER DILUTED IN 500 ML OF 5% DEXTROSE AND WATER FOR ADMINISTRATION B
  3. CARBOPLATIN. [Suspect]
     Active Substance: CARBOPLATIN
     Indication: SOFT TISSUE SARCOMA
     Dosage: 240 MG/M2, CYCLIC
     Route: 042
  4. CARBOPLATIN. [Suspect]
     Active Substance: CARBOPLATIN
     Dosage: 66 MG/M2, CYCLIC
  5. MANNITOL. [Concomitant]
     Active Substance: MANNITOL
     Indication: SOFT TISSUE SARCOMA
     Dosage: UNK (150 MG OF DRUG AS A WHITE LYOPHILIZED POWDER WITH 150 MG OF MANNITOL.)

REACTIONS (1)
  - Acute kidney injury [Unknown]
